FAERS Safety Report 10782697 (Version 1)
Quarter: 2015Q1

REPORT INFORMATION
  Report Type: Spontaneous
  Country: US (occurrence: US)
  Receive Date: 20150210
  Receipt Date: 20150210
  Transmission Date: 20150721
  Serious: No
  Sender: FDA-Public Use
  Company Number: US-GLAXOSMITHKLINE-A1076622A

PATIENT

DRUGS (2)
  1. LAMICTAL [Suspect]
     Active Substance: LAMOTRIGINE
     Indication: PRODUCT USED FOR UNKNOWN INDICATION
     Dosage: 100 MG, UNKNOWN DOSINGALSO RECEIVING 25 MG WITH A START DATE OF 28 FEBRUARY 2012 AND 250 MG WIT[...]
     Route: 065
     Dates: start: 20100409
  2. LAMICTAL XR [Suspect]
     Active Substance: LAMOTRIGINE
     Indication: PRODUCT USED FOR UNKNOWN INDICATION
     Dosage: 200 MG, UNKNOWN DOSINGALSO RECEIVING 300 MG WITH A START DATE OF 04 MAY 2013, UNKNOWN DOSING
     Route: 065
     Dates: start: 20091230

REACTIONS (1)
  - Malaise [Not Recovered/Not Resolved]
